FAERS Safety Report 23581208 (Version 1)
Quarter: 2024Q1

REPORT INFORMATION
  Report Type: Spontaneous
  Country: US (occurrence: US)
  Receive Date: 20240229
  Receipt Date: 20240229
  Transmission Date: 20240410
  Serious: No
  Sender: FDA-Public Use
  Company Number: US-ELI_LILLY_AND_COMPANY-US202402016313

PATIENT
  Age: 83 Year
  Sex: Female

DRUGS (4)
  1. TALTZ [Suspect]
     Active Substance: IXEKIZUMAB
     Indication: Product used for unknown indication
     Dosage: UNK UNK, UNKNOWN
     Route: 065
     Dates: start: 2021
  2. TALTZ [Suspect]
     Active Substance: IXEKIZUMAB
     Indication: Product used for unknown indication
     Dosage: UNK UNK, UNKNOWN
     Route: 065
     Dates: start: 2021
  3. TALTZ [Suspect]
     Active Substance: IXEKIZUMAB
     Dosage: 160 MG, OTHER (LOADING DOSE)
     Route: 065
  4. TALTZ [Suspect]
     Active Substance: IXEKIZUMAB
     Dosage: 160 MG, OTHER (LOADING DOSE)
     Route: 065

REACTIONS (3)
  - Memory impairment [Unknown]
  - Injection site pain [Unknown]
  - Injection site mass [Unknown]
